FAERS Safety Report 5837062-0 (Version None)
Quarter: 2008Q3

REPORT INFORMATION
  Report Type: 
  Country: None (occurrence: None)
  Receive Date: 20080807
  Receipt Date: 20070629
  Transmission Date: 20090109
  Serious: No
  Sender: FDA-Public Use
  Company Number: A0660618A

PATIENT
  Sex: Male

DRUGS (1)
  1. TAGAMET HB 200 [Suspect]

REACTIONS (1)
  - RASH [None]
